FAERS Safety Report 11270913 (Version 1)
Quarter: 2015Q3

REPORT INFORMATION
  Report Type: Spontaneous
  Country: PE (occurrence: PE)
  Receive Date: 20150714
  Receipt Date: 20150714
  Transmission Date: 20151125
  Serious: Yes (Other)
  Sender: FDA-Public Use
  Company Number: PE-BAYER-2015-374557

PATIENT
  Age: 32 Year
  Sex: Female

DRUGS (1)
  1. YASMINIQ [Suspect]
     Active Substance: DROSPIRENONE\ETHINYL ESTRADIOL
     Indication: POLYCYSTIC OVARIES
     Dosage: 1 DF, UNK
     Dates: start: 2012

REACTIONS (4)
  - Tachycardia [Not Recovered/Not Resolved]
  - Back pain [Not Recovered/Not Resolved]
  - Pulmonary pain [Not Recovered/Not Resolved]
  - Product use issue [None]
